FAERS Safety Report 7331170-3 (Version None)
Quarter: 2011Q1

REPORT INFORMATION
  Report Type: 
  Country: None (occurrence: None)
  Receive Date: 20110228
  Receipt Date: 20110228
  Transmission Date: 20110831
  Serious: Yes (Hospitalization)
  Sender: FDA-Public Use
  Company Number: None

PATIENT
  Sex: Female
  Weight: 102.0593 kg

DRUGS (1)
  1. RANEXA [Suspect]
     Indication: CARDIAC DISORDER
     Dosage: 1 TAB 2X DAILY ORAL   LESS THAN 30 DAYS
     Route: 048

REACTIONS (1)
  - PARAPLEGIA [None]
